FAERS Safety Report 22748369 (Version 2)
Quarter: 2023Q4

REPORT INFORMATION
  Report Type: Spontaneous
  Country: JP (occurrence: JP)
  Receive Date: 20230725
  Receipt Date: 20231026
  Transmission Date: 20240110
  Serious: Yes (Hospitalization, Other)
  Sender: FDA-Public Use
  Company Number: JP-ONO-2023JP018882

PATIENT
  Age: 80 Year
  Sex: Male

DRUGS (3)
  1. OPDIVO [Suspect]
     Active Substance: NIVOLUMAB
     Indication: Gastric cancer
     Dosage: UNK
     Route: 041
  2. TS-1 [Suspect]
     Active Substance: GIMERACIL\OTERACIL POTASSIUM\TEGAFUR
     Indication: Gastric cancer
     Dosage: 120 MG, EVERYDAY
  3. OXALIPLATIN [Suspect]
     Active Substance: OXALIPLATIN
     Indication: Gastric cancer
     Dosage: 80 %

REACTIONS (4)
  - Immune-mediated enterocolitis [Unknown]
  - Hypothyroidism [Unknown]
  - Neutrophil count decreased [Unknown]
  - Hyponatraemia [Unknown]
